FAERS Safety Report 5626957-9 (Version None)
Quarter: 2008Q1

REPORT INFORMATION
  Report Type: 
  Country: None (occurrence: None)
  Receive Date: 20080130
  Receipt Date: 20071106
  Transmission Date: 20080703
  Serious: Yes (Hospitalization)
  Sender: FDA-Public Use
  Company Number: US-WYE-H01134407

PATIENT
  Age: 5 Decade
  Sex: Male

DRUGS (4)
  1. CORDARONE [Suspect]
     Indication: SUPRAVENTRICULAR TACHYCARDIA
     Dosage: 800 MG 2 X PER 1 DAY, ORAL
     Route: 048
     Dates: start: 20011027, end: 20011030
  2. DIGOXIN [Concomitant]
  3. ACETAMINOPHEN [Concomitant]
  4. AMPICILLIN [Concomitant]

REACTIONS (2)
  - AUTISM [None]
  - HYPOTHYROIDISM [None]
